FAERS Safety Report 6386103-3 (Version None)
Quarter: 2009Q4

REPORT INFORMATION
  Report Type: 
  Country: None (occurrence: None)
  Receive Date: 20091002
  Receipt Date: 20081210
  Transmission Date: 20100525
  Serious: Yes (Other)
  Sender: FDA-Public Use
  Company Number: US-ASTRAZENECA-2008UW27665

PATIENT
  Age: 60 Year
  Sex: Female
  Weight: 113.4 kg

DRUGS (3)
  1. ARIMIDEX [Suspect]
     Indication: BREAST CANCER
     Route: 048
     Dates: start: 20070801
  2. METOPROLOL TARTRATE [Concomitant]
  3. CLONIDINE [Concomitant]

REACTIONS (6)
  - HEADACHE [None]
  - MOOD ALTERED [None]
  - OEDEMA PERIPHERAL [None]
  - VAGINAL INFECTION [None]
  - VAGINAL ODOUR [None]
  - WEIGHT INCREASED [None]
